FAERS Safety Report 9894206 (Version 1)
Quarter: 2014Q1

REPORT INFORMATION
  Report Type: Spontaneous
  Country: US (occurrence: US)
  Receive Date: 20140213
  Receipt Date: 20140213
  Transmission Date: 20141002
  Serious: Yes (Life-Threatening, Hospitalization, Disabling, Other)
  Sender: FDA-Public Use
  Company Number: US-FRI-1000054129

PATIENT
  Age: 62 Year
  Sex: Male
  Weight: 102.04 kg

DRUGS (6)
  1. SAPHRIS [Suspect]
     Indication: BIPOLAR DISORDER
     Dosage: 5 MG
     Route: 060
     Dates: start: 20130917, end: 20131001
  2. LIPITOR [Concomitant]
     Indication: BLOOD CHOLESTEROL INCREASED
     Dates: start: 2011
  3. TRICOR [Concomitant]
     Indication: BLOOD CHOLESTEROL INCREASED
     Dates: start: 2011
  4. LEXAPRO [Concomitant]
     Indication: BIPOLAR DISORDER
     Dates: start: 2012
  5. LEXAPRO [Concomitant]
     Indication: DEPRESSION
  6. ATIVAN [Concomitant]
     Indication: INSOMNIA
     Dates: start: 2012

REACTIONS (3)
  - Renal failure [Recovering/Resolving]
  - Granulomatosis with polyangiitis [Unknown]
  - Swollen tongue [Not Recovered/Not Resolved]
